FAERS Safety Report 21101262 (Version 1)
Quarter: 2022Q3

REPORT INFORMATION
  Report Type: Spontaneous
  Country: US (occurrence: None)
  Receive Date: 20220719
  Receipt Date: 20220719
  Transmission Date: 20221026
  Serious: Yes (Other)
  Sender: FDA-Public Use
  Company Number: None

PATIENT
  Sex: Female

DRUGS (1)
  1. PACLITAXEL [Suspect]
     Active Substance: PACLITAXEL
     Indication: Breast cancer
     Route: 042

REACTIONS (6)
  - Infusion related reaction [None]
  - Back pain [None]
  - Chest discomfort [None]
  - Heart rate increased [None]
  - Blood pressure increased [None]
  - Dyspnoea [None]

NARRATIVE: CASE EVENT DATE: 20220705
